FAERS Safety Report 6728488-1 (Version None)
Quarter: 2010Q2

REPORT INFORMATION
  Report Type: 
  Country: None (occurrence: None)
  Receive Date: 20100517
  Receipt Date: 20100510
  Transmission Date: 20101027
  Serious: Yes (Other)
  Sender: FDA-Public Use
  Company Number: US-PFIZER INC-2010049289

PATIENT
  Sex: Male
  Weight: 73 kg

DRUGS (5)
  1. CHANTIX [Suspect]
     Indication: SMOKING CESSATION THERAPY
     Dosage: UNK
     Route: 048
     Dates: start: 20100301
  2. VICODIN [Concomitant]
     Dosage: UNK
  3. KLONOPIN [Concomitant]
     Indication: RELAXATION THERAPY
     Dosage: 1 MG, 3X/DAY
  4. SEROQUEL [Concomitant]
     Dosage: 150 MG, DAILY
  5. FIBERCON [Concomitant]

REACTIONS (13)
  - ACCIDENT [None]
  - ARTHRITIS [None]
  - ARTHROPATHY [None]
  - FRACTURE [None]
  - KNEE OPERATION [None]
  - LIMB OPERATION [None]
  - MOOD SWINGS [None]
  - NERVOUSNESS [None]
  - SHOULDER OPERATION [None]
  - SURGERY [None]
  - VISUAL ACUITY REDUCED [None]
  - WITHDRAWAL SYNDROME [None]
  - WRIST FRACTURE [None]
